FAERS Safety Report 7771800-5 (Version None)
Quarter: 2011Q3

REPORT INFORMATION
  Report Type: 
  Country: None (occurrence: None)
  Receive Date: 20110922
  Receipt Date: 20110909
  Transmission Date: 20111222
  Serious: Yes (Hospitalization)
  Sender: FDA-Public Use
  Company Number: US-ELI_LILLY_AND_COMPANY-US201109002960

PATIENT
  Age: 73 Year
  Sex: Female

DRUGS (2)
  1. HUMULIN N [Suspect]
  2. HUMULIN 70/30 [Suspect]

REACTIONS (6)
  - POST PROCEDURAL COMPLICATION [None]
  - MYOCARDIAL INFARCTION [None]
  - STAPHYLOCOCCAL INFECTION [None]
  - MASS [None]
  - ABSCESS [None]
  - DRUG DISPENSING ERROR [None]
